FAERS Safety Report 25568390 (Version 1)
Quarter: 2025Q3

REPORT INFORMATION
  Report Type: Spontaneous
  Country: US (occurrence: US)
  Receive Date: 20250716
  Receipt Date: 20250716
  Transmission Date: 20251020
  Serious: No
  Sender: GALPHARM INTERNATIONAL
  Company Number: US-PERRIGO-24US008834

PATIENT
  Age: 35 Year
  Sex: Female

DRUGS (6)
  1. MINOXIDIL [Suspect]
     Active Substance: MINOXIDIL
     Indication: Alopecia
     Route: 061
     Dates: start: 202404, end: 2024
  2. MINOXIDIL [Suspect]
     Active Substance: MINOXIDIL
     Route: 061
     Dates: start: 2024
  3. MINOXIDIL [Concomitant]
     Active Substance: MINOXIDIL
     Indication: Alopecia
     Route: 048
  4. NUTRAFOL [Concomitant]
     Indication: Supplementation therapy
     Route: 065
  5. KETOCONAZOLE [Concomitant]
     Active Substance: KETOCONAZOLE
     Indication: Product used for unknown indication
     Route: 065
  6. IRON [Concomitant]
     Active Substance: IRON
     Indication: Supplementation therapy
     Route: 065

REACTIONS (5)
  - Application site exfoliation [Recovering/Resolving]
  - Condition aggravated [Recovering/Resolving]
  - Application site irritation [Recovered/Resolved]
  - Product use issue [Unknown]
  - Wrong technique in product usage process [Unknown]

NARRATIVE: CASE EVENT DATE: 20240101
